FAERS Safety Report 6473048-3 (Version None)
Quarter: 2009Q4

REPORT INFORMATION
  Report Type: 
  Country: None (occurrence: None)
  Receive Date: 20091204
  Receipt Date: 20091123
  Transmission Date: 20100525
  Serious: Yes (Hospitalization)
  Sender: FDA-Public Use
  Company Number: DE-ELI_LILLY_AND_COMPANY-DE200911005717

PATIENT
  Age: 62 Year
  Sex: Female
  Weight: 156 kg

DRUGS (2)
  1. GEMCITABINE HCL [Suspect]
     Indication: ADJUVANT THERAPY
     Dosage: 1660 MG, UNK
     Route: 042
     Dates: start: 20070208, end: 20070413
  2. DOCETAXEL [Suspect]
     Indication: ADJUVANT THERAPY
     Dosage: 126 MG, UNK
     Route: 042
     Dates: start: 20070208, end: 20070405

REACTIONS (4)
  - GASTROENTERITIS [None]
  - GENERAL PHYSICAL HEALTH DETERIORATION [None]
  - PYREXIA [None]
  - URINARY TRACT INFECTION [None]
